FAERS Safety Report 11523294 (Version 1)
Quarter: 2015Q3

REPORT INFORMATION
  Report Type: Spontaneous
  Country: US (occurrence: US)
  Receive Date: 20150903
  Receipt Date: 20150903
  Transmission Date: 20151125
  Serious: Yes (Other)
  Sender: FDA-Public Use
  Company Number: US-ELI_LILLY_AND_COMPANY-US201301009910

PATIENT
  Age: 55 Year
  Sex: Female

DRUGS (4)
  1. CYMBALTA [Suspect]
     Active Substance: DULOXETINE HYDROCHLORIDE
     Dosage: 60 MG, QD
  2. DEXLANSOPRAZOLE [Concomitant]
     Active Substance: DEXLANSOPRAZOLE
  3. CYMBALTA [Suspect]
     Active Substance: DULOXETINE HYDROCHLORIDE
     Indication: DEPRESSION
     Dosage: 30 MG, QD
  4. LYRICA [Concomitant]
     Active Substance: PREGABALIN

REACTIONS (9)
  - Anxiety [Unknown]
  - Gait disturbance [Unknown]
  - Gout [Unknown]
  - Arthritis [Unknown]
  - Suicidal ideation [Unknown]
  - Depression [Unknown]
  - Weight increased [Unknown]
  - Anger [Unknown]
  - Pain in extremity [Unknown]
